FAERS Safety Report 5765939-3 (Version None)
Quarter: 2008Q2

REPORT INFORMATION
  Report Type: 
  Country: None (occurrence: None)
  Receive Date: 20080611
  Receipt Date: 20071012
  Transmission Date: 20081010
  Serious: No
  Sender: FDA-Public Use
  Company Number: US-BRISTOL-MYERS SQUIBB COMPANY-13940168

PATIENT
  Sex: Male
  Weight: 82 kg

DRUGS (1)
  1. SINEMET [Suspect]
     Dosage: 1 DOSAGE FORM=25/100 MG

REACTIONS (1)
  - HYPERHIDROSIS [None]
